FAERS Safety Report 4570480-X (Version None)
Quarter: 2005Q1

REPORT INFORMATION
  Report Type: 
  Country: None (occurrence: None)
  Receive Date: 20050203
  Receipt Date: 20050203
  Transmission Date: 20050727
  Serious: No
  Sender: FDA-Public Use
  Company Number: None

PATIENT
  Age: 55 Year
  Sex: Female
  Weight: 109.3169 kg

DRUGS (5)
  1. CRESTOR [Suspect]
     Indication: DYSLIPIDAEMIA
     Dosage: 10 MG PO QPM
     Route: 048
     Dates: start: 20041213, end: 20041230
  2. CARBAMAZEPINE [Suspect]
     Indication: AGGRESSION
     Dosage: 400 MG BID/600 MG BID
     Dates: start: 19980312
  3. CARBAMAZEPINE [Concomitant]
  4. ARIPIPRAZOLE [Concomitant]
  5. OLANZAPINE [Concomitant]

REACTIONS (5)
  - ASTHENIA [None]
  - DIZZINESS [None]
  - FALL [None]
  - GAIT DISTURBANCE [None]
  - LIPIDS ABNORMAL [None]
